FAERS Safety Report 5358895-3 (Version None)
Quarter: 2007Q2

REPORT INFORMATION
  Report Type: 
  Country: None (occurrence: None)
  Receive Date: 20070615
  Receipt Date: 20070612
  Transmission Date: 20071010
  Serious: Yes (Death)
  Sender: FDA-Public Use
  Company Number: A0656484A

PATIENT
  Age: 24 Year
  Sex: Female

DRUGS (1)
  1. MALARONE [Suspect]
     Indication: DRUG USE FOR UNKNOWN INDICATION
     Route: 065

REACTIONS (5)
  - COMPLETED SUICIDE [None]
  - DIARRHOEA [None]
  - SKIN REACTION [None]
  - SOMNOLENCE [None]
  - STOMACH DISCOMFORT [None]
